FAERS Safety Report 5837929-3 (Version None)
Quarter: 2008Q3

REPORT INFORMATION
  Report Type: 
  Country: None (occurrence: None)
  Receive Date: 20080808
  Receipt Date: 20080807
  Transmission Date: 20090109
  Serious: Yes (Other)
  Sender: FDA-Public Use
  Company Number: CN-BRISTOL-MYERS SQUIBB COMPANY-14291926

PATIENT
  Age: 70 Year
  Sex: Female

DRUGS (4)
  1. MAXIPIME [Suspect]
     Indication: PYREXIA
     Route: 041
     Dates: start: 20080805, end: 20080806
  2. MAXIPIME [Suspect]
     Indication: COUGH
     Route: 041
     Dates: start: 20080805, end: 20080806
  3. PENICILLIN [Concomitant]
     Indication: COUGH
  4. PENICILLIN [Concomitant]
     Indication: PYREXIA

REACTIONS (3)
  - HYPERHIDROSIS [None]
  - SPEECH DISORDER [None]
  - TREMOR [None]
